FAERS Safety Report 17665440 (Version 1)
Quarter: 2020Q2

REPORT INFORMATION
  Report Type: Spontaneous
  Country: US (occurrence: US)
  Receive Date: 20200414
  Receipt Date: 20200414
  Transmission Date: 20200713
  Serious: No
  Sender: FDA-Public Use
  Company Number: US-VERTEX PHARMACEUTICALS-2020-008339

PATIENT
  Sex: Male
  Weight: 75 kg

DRUGS (10)
  1. MAGNESIUM [Concomitant]
     Active Substance: MAGNESIUM
     Dosage: 200 MG
  2. SINGULAIR [Concomitant]
     Active Substance: MONTELUKAST SODIUM
     Dosage: 10 MG
  3. AZITHROMYCIN ANHYDROUS. [Concomitant]
     Active Substance: AZITHROMYCIN ANHYDROUS
     Dosage: 250 MG
  4. VENTOLIN HFA [Concomitant]
     Active Substance: ALBUTEROL SULFATE
     Dosage: 90 MICROGRAM
  5. VITAMIN D3 [Concomitant]
     Active Substance: CHOLECALCIFEROL
     Dosage: UNK
  6. QVAR REDIHALER [Concomitant]
     Active Substance: BECLOMETHASONE DIPROPIONATE
     Dosage: 80 MICROGRAM
  7. VITAMIN K [PHYTOMENADIONE] [Concomitant]
     Dosage: 100 MICROGRAM
  8. TRIKAFTA [Suspect]
     Active Substance: ELEXACAFTOR\IVACAFTOR\TEZACAFTOR
     Indication: CYSTIC FIBROSIS
     Dosage: 100 MG ELEXACAFTOR/ 50 MG TEZACAFTOR/ 75 MG IVACAFTOR; 150MG IVACAFTOR , BID
     Route: 048
     Dates: start: 2020
  9. CREON [Concomitant]
     Active Substance: PANCRELIPASE AMYLASE\PANCRELIPASE LIPASE\PANCRELIPASE PROTEASE
     Dosage: UNK
  10. HYPERSAL [Concomitant]
     Active Substance: SODIUM CHLORIDE
     Dosage: 7 %

REACTIONS (1)
  - Cough [Recovering/Resolving]

NARRATIVE: CASE EVENT DATE: 2020
